FAERS Safety Report 8007682-6 (Version None)
Quarter: 2011Q4

REPORT INFORMATION
  Report Type: 
  Country: None (occurrence: None)
  Receive Date: 20111227
  Receipt Date: 20110915
  Transmission Date: 20120403
  Serious: No
  Sender: FDA-Public Use
  Company Number: US-ABBOTT-11P-163-0855173-00

PATIENT
  Age: 79 Year
  Sex: Male

DRUGS (2)
  1. LUPRON DEPOT [Suspect]
     Indication: PROSTATE CANCER
     Dates: start: 20030101, end: 20110101
  2. PROSCAR [Concomitant]
     Indication: PROSTATIC DISORDER

REACTIONS (1)
  - HOT FLUSH [None]
